FAERS Safety Report 5903156-4 (Version None)
Quarter: 2008Q3

REPORT INFORMATION
  Report Type: 
  Country: None (occurrence: None)
  Receive Date: 20080930
  Receipt Date: 20080922
  Transmission Date: 20090109
  Serious: Yes (Hospitalization)
  Sender: FDA-Public Use
  Company Number: PHHO2008MY11052

PATIENT
  Sex: Male
  Weight: 65 kg

DRUGS (7)
  1. RAD 666 RAD+TAB [Suspect]
     Indication: RENAL TRANSPLANT
     Dosage: 2 MG DAILY
     Route: 048
     Dates: start: 20060911, end: 20080908
  2. SANDIMMUNE [Suspect]
     Indication: RENAL TRANSPLANT
  3. PREDNISOLONE [Suspect]
     Indication: RENAL TRANSPLANT
     Dosage: 7.5 MG DAILY
     Route: 048
     Dates: start: 19940101, end: 20080907
  4. PREDNISOLONE [Suspect]
     Dosage: 5 MG DAILY
     Dates: start: 20080908
  5. GLICLAZIDE [Concomitant]
     Indication: DIABETES MELLITUS
     Dosage: 80 MG, BID
  6. GLICLAZIDE [Concomitant]
     Dosage: 160 MG, BID
  7. SIROLIMUS [Concomitant]
     Dosage: UNK
     Dates: start: 20080909

REACTIONS (8)
  - BLOOD CREATININE INCREASED [None]
  - BLOOD GLUCOSE INCREASED [None]
  - BLOOD UREA INCREASED [None]
  - CONCOMITANT DISEASE PROGRESSION [None]
  - DEHYDRATION [None]
  - DIABETES MELLITUS INADEQUATE CONTROL [None]
  - NOCTURIA [None]
  - WEIGHT DECREASED [None]
